FAERS Safety Report 25803453 (Version 2)
Quarter: 2025Q4

REPORT INFORMATION
  Report Type: Spontaneous
  Country: EU (occurrence: EU)
  Receive Date: 20250915
  Receipt Date: 20251003
  Transmission Date: 20260117
  Serious: Yes (Death)
  Sender: SANDOZ
  Company Number: EU-SANDOZ-SDZ2025SK066870

PATIENT
  Age: 68 Year
  Sex: Male

DRUGS (4)
  1. RANIBIZUMAB [Suspect]
     Active Substance: RANIBIZUMAB
     Dosage: FIRST DOSE IN LEFT EYE
     Route: 065
     Dates: start: 20250416, end: 20250416
  2. RANIBIZUMAB [Suspect]
     Active Substance: RANIBIZUMAB
     Indication: Diabetic retinopathy
     Dosage: FIRST DOSE IN RIGHT EYE
     Route: 065
     Dates: start: 20250415, end: 20250415
  3. RANIBIZUMAB [Suspect]
     Active Substance: RANIBIZUMAB
     Dosage: SECOND DOSE IN LEFT EYE
     Route: 065
     Dates: start: 20250611, end: 20250611
  4. RANIBIZUMAB [Suspect]
     Active Substance: RANIBIZUMAB
     Dosage: SECOND DOSE IN RIGHT EYE
     Route: 065
     Dates: start: 20250610, end: 20250610

REACTIONS (1)
  - Death [Fatal]

NARRATIVE: CASE EVENT DATE: 20250827
